FAERS Safety Report 16183905 (Version 1)
Quarter: 2019Q2

REPORT INFORMATION
  Report Type: Spontaneous
  Country: US (occurrence: US)
  Receive Date: 20190410
  Receipt Date: 20190410
  Transmission Date: 20190711
  Serious: Yes (Other)
  Sender: FDA-Public Use
  Company Number: None

PATIENT
  Age: 35 Year
  Sex: Female
  Weight: 60.75 kg

DRUGS (2)
  1. HYDROXYZINE 25MG 1-2 Q 6 H PRN [Concomitant]
     Dates: start: 20180823
  2. CHANTIX [Suspect]
     Active Substance: VARENICLINE TARTRATE
     Indication: SMOKING CESSATION THERAPY
     Dosage: ?          OTHER FREQUENCY:1 QAM X 3 DAYS;?
     Route: 048
     Dates: start: 20190304, end: 20190307

REACTIONS (2)
  - Loss of consciousness [None]
  - Hallucination [None]

NARRATIVE: CASE EVENT DATE: 20190409
